FAERS Safety Report 6396343-5 (Version None)
Quarter: 2009Q4

REPORT INFORMATION
  Report Type: 
  Country: None (occurrence: None)
  Receive Date: 20091012
  Receipt Date: 20090928
  Transmission Date: 20100525
  Serious: Yes (Disabling)
  Sender: FDA-Public Use
  Company Number: PHHY2009FR42007

PATIENT
  Sex: Female

DRUGS (1)
  1. FEMARA [Suspect]
     Dosage: UNK
     Dates: start: 20080901, end: 20090401

REACTIONS (2)
  - KERATOCONJUNCTIVITIS SICCA [None]
  - MUSCULOSKELETAL PAIN [None]
